FAERS Safety Report 6679290-0 (Version None)
Quarter: 2010Q2

REPORT INFORMATION
  Report Type: 
  Country: None (occurrence: None)
  Receive Date: 20100413
  Receipt Date: 20100401
  Transmission Date: 20101027
  Serious: Yes (Other)
  Sender: FDA-Public Use
  Company Number: US-JNJCH-2010008305

PATIENT
  Sex: Male

DRUGS (1)
  1. NEOSPORIN [Suspect]
     Indication: SKIN IRRITATION
     Dosage: TEXT:UNKNOWN
     Route: 061

REACTIONS (1)
  - APPLICATION SITE INFECTION [None]
